FAERS Safety Report 7717547-2 (Version None)
Quarter: 2011Q3

REPORT INFORMATION
  Report Type: 
  Country: None (occurrence: None)
  Receive Date: 20110824
  Receipt Date: 20110803
  Transmission Date: 20111222
  Serious: Yes (Life-Threatening, Hospitalization)
  Sender: FDA-Public Use
  Company Number: 2280705-2011-00019

PATIENT
  Age: 2 Year
  Sex: Female

DRUGS (1)
  1. BABY ORAJEL, STRENGTH UNKNOWN, CHURCH + DWIGHT CO., INC. [Suspect]
     Dosage: UNK, DOSE, 1X, ORAL
     Route: 048
     Dates: start: 20110727

REACTIONS (2)
  - ACCIDENTAL DRUG INTAKE BY CHILD [None]
  - METHAEMOGLOBINAEMIA [None]
